FAERS Safety Report 17609237 (Version 1)
Quarter: 2020Q2

REPORT INFORMATION
  Report Type: Spontaneous
  Country: CN (occurrence: CN)
  Receive Date: 20200401
  Receipt Date: 20200401
  Transmission Date: 20200713
  Serious: Yes (Hospitalization)
  Sender: FDA-Public Use
  Company Number: CN-BAXTER-2020BAX006745

PATIENT
  Age: 54 Year
  Sex: Male
  Weight: 58 kg

DRUGS (8)
  1. 0.9% SODIUM CHLORIDE INJECTION [Suspect]
     Active Substance: SODIUM CHLORIDE
     Dosage: DILUTED WITH VINCRISTINE SULFATE; PICC (PERIPHERALLY INSERTED CENTRAL CATHETER); DOSE RE-INTRODUCED
     Route: 041
  2. 0.9% SODIUM CHLORIDE INJECTION [Suspect]
     Active Substance: SODIUM CHLORIDE
     Dosage: DILUTED WITH 2 MG VINCRISTINE SULFATE; PICC (PERIPHERALLY INSERTED CENTRAL CATHETER)
     Route: 041
     Dates: start: 20200227, end: 20200227
  3. ENDOXAN [Suspect]
     Active Substance: CYCLOPHOSPHAMIDE
     Indication: EXTRANODAL MARGINAL ZONE B-CELL LYMPHOMA (MALT TYPE)
     Dosage: DILUTED WITH 40 ML 0.9% NORMAL SALINE; PICC (PERIPHERALLY INSERTED CENTRAL CATHETER)
     Route: 042
     Dates: start: 20200227, end: 20200227
  4. ENDOXAN [Suspect]
     Active Substance: CYCLOPHOSPHAMIDE
     Indication: EXTRANODAL MARGINAL ZONE B-CELL LYMPHOMA (MALT TYPE) RECURRENT
     Dosage: DILUTED WITH 0.9% NORMAL SALINE; PICC (PERIPHERALLY INSERTED CENTRAL CATHETER); DOSE RE-INTRODUCED
     Route: 042
  5. VINCRISTINE SULFATE. [Suspect]
     Active Substance: VINCRISTINE SULFATE
     Indication: EXTRANODAL MARGINAL ZONE B-CELL LYMPHOMA (MALT TYPE) RECURRENT
     Dosage: DILUTED WITH 0.9% NS; PICC (PERIPHERALLY INSERTED CENTRAL CATHETER); DOSE RE-INTRODUCED
     Route: 041
  6. 0.9% SODIUM CHLORIDE INJECTION [Suspect]
     Active Substance: SODIUM CHLORIDE
     Indication: MEDICATION DILUTION
     Dosage: DILUTED WITH 1.2 G CYCLOPHOSPHAMIDE; PICC (PERIPHERALLY INSERTED CENTRAL CATHETER)
     Route: 042
     Dates: start: 20200227, end: 20200227
  7. VINCRISTINE SULFATE. [Suspect]
     Active Substance: VINCRISTINE SULFATE
     Indication: EXTRANODAL MARGINAL ZONE B-CELL LYMPHOMA (MALT TYPE)
     Dosage: DILUTED WITH 40 ML 0.9% NS; PICC (PERIPHERALLY INSERTED CENTRAL CATHETER)
     Route: 041
     Dates: start: 20200227, end: 20200227
  8. 0.9% SODIUM CHLORIDE INJECTION [Suspect]
     Active Substance: SODIUM CHLORIDE
     Dosage: DILUTED WITH CYCLOPHOSPHAMIDE; PICC (PERIPHERALLY INSERTED CENTRAL CATHETER); DOSE RE-INTRODUCED
     Route: 042

REACTIONS (1)
  - Platelet count decreased [Recovering/Resolving]

NARRATIVE: CASE EVENT DATE: 20200304
